FAERS Safety Report 10069748 (Version 2)
Quarter: 2014Q2

REPORT INFORMATION
  Report Type: Report from Study
  Country: SE (occurrence: SE)
  Receive Date: 20140410
  Receipt Date: 20140410
  Transmission Date: 20141212
  Serious: Yes (Hospitalization)
  Sender: FDA-Public Use
  Company Number: SE-ROCHE-1373587

PATIENT
  Age: 80 Year
  Sex: Male
  Weight: 89.8 kg

DRUGS (9)
  1. BLINDED TOCILIZUMAB [Suspect]
     Indication: TEMPORAL ARTERITIS
     Dosage: LAST DOSE PRIOR TO SAE: 12/FEB/2014
     Route: 058
     Dates: start: 20131204
  2. PREDNISONE [Suspect]
     Indication: TEMPORAL ARTERITIS
     Route: 048
     Dates: start: 20131204
  3. TROMBYL [Concomitant]
     Route: 048
     Dates: start: 20111130
  4. LASIX RETARD [Concomitant]
     Route: 048
     Dates: start: 20131106
  5. OMEPRAZOLE [Concomitant]
     Route: 048
     Dates: start: 20131003
  6. ALENDRONAT [Concomitant]
     Route: 048
     Dates: start: 20130715
  7. CALCICHEW D3 [Concomitant]
     Route: 048
     Dates: start: 20130715
  8. NOVONORM [Concomitant]
     Route: 048
     Dates: start: 20131218
  9. KAVEPENIN [Concomitant]
     Route: 048
     Dates: start: 20140322

REACTIONS (3)
  - Peripheral swelling [Unknown]
  - Erythema [Unknown]
  - Deep vein thrombosis [Unknown]
